FAERS Safety Report 6159042-0 (Version None)
Quarter: 2009Q2

REPORT INFORMATION
  Report Type: 
  Country: None (occurrence: None)
  Receive Date: 20090417
  Receipt Date: 20090408
  Transmission Date: 20091009
  Serious: Yes (Disabling)
  Sender: FDA-Public Use
  Company Number: NO-PFIZER INC-2009196152

PATIENT

DRUGS (9)
  1. LIPITOR [Suspect]
     Indication: CORONARY ARTERY DISEASE
     Dosage: 40 MG, 1X/DAY
     Route: 048
     Dates: end: 20051020
  2. BOTOX [Concomitant]
  3. ALBYL-E [Concomitant]
     Route: 048
  4. SELO-ZOK [Concomitant]
     Route: 048
  5. BURINEX [Concomitant]
     Route: 048
  6. PARACETAMOL [Concomitant]
     Route: 048
  7. IMOVANE [Concomitant]
     Route: 048
  8. VENTOLIN [Concomitant]
     Route: 055
  9. NITROGLYCERIN [Concomitant]
     Route: 060

REACTIONS (2)
  - INCLUSION BODY MYOSITIS [None]
  - MYALGIA [None]
